FAERS Safety Report 5896324-1 (Version None)
Quarter: 2008Q3

REPORT INFORMATION
  Report Type: 
  Country: None (occurrence: None)
  Receive Date: 20080924
  Receipt Date: 20070827
  Transmission Date: 20090109
  Serious: Yes (Hospitalization)
  Sender: FDA-Public Use
  Company Number: US-ASTRAZENECA-2007UW20404

PATIENT
  Age: 21600 Day
  Sex: Female
  Weight: 99.8 kg

DRUGS (1)
  1. SEROQUEL [Suspect]
     Indication: DEPRESSION
     Dates: start: 20050201, end: 20061101

REACTIONS (8)
  - BLOOD CHOLESTEROL INCREASED [None]
  - BLOOD TRIGLYCERIDES INCREASED [None]
  - CHEST PAIN [None]
  - DIABETES MELLITUS [None]
  - DIARRHOEA [None]
  - DYSPNOEA [None]
  - LIMB INJURY [None]
  - VOMITING [None]
